FAERS Safety Report 7431898-0 (Version None)
Quarter: 2011Q2

REPORT INFORMATION
  Report Type: 
  Country: None (occurrence: None)
  Receive Date: 20110422
  Receipt Date: 20110419
  Transmission Date: 20111010
  Serious: Yes (Death, Congenital Anomaly, Other)
  Sender: FDA-Public Use
  Company Number: US-PFIZER INC-2011085470

PATIENT
  Sex: Male

DRUGS (9)
  1. ZOLOFT [Suspect]
     Indication: DEPRESSION
     Dosage: 50 MG, UNK
     Route: 064
     Dates: start: 20050101
  2. ZOLOFT [Suspect]
     Dosage: 150 MG, UNK
     Route: 064
     Dates: start: 20060501
  3. ZOLOFT [Suspect]
     Indication: ANXIETY
     Dosage: 100 MG, UNK
     Route: 064
     Dates: start: 20050101
  4. PRENATAL VITAMINS [Concomitant]
     Dosage: UNK
  5. ZOLOFT [Suspect]
     Dosage: 50 MG, 3X/DAY
     Route: 064
     Dates: start: 20070501
  6. LOVENOX [Concomitant]
     Dosage: 40MG/0.4ML
     Route: 064
     Dates: start: 20061026, end: 20090608
  7. SERTRALINE HYDROCHLORIDE [Concomitant]
     Dosage: 50 MG, UNK
     Dates: start: 20061004
  8. ZOLOFT [Suspect]
     Dosage: 125 MG, UNK
     Route: 064
     Dates: start: 20060601
  9. ZYRTEC [Concomitant]
     Dosage: 10 MG TABLET BEFORE NOON
     Route: 064
     Dates: start: 20070413, end: 20070711

REACTIONS (2)
  - HYPOPLASTIC LEFT HEART SYNDROME [None]
  - DRUG EXPOSURE DURING PREGNANCY [None]
